FAERS Safety Report 6955577-9 (Version None)
Quarter: 2010Q3

REPORT INFORMATION
  Report Type: 
  Country: None (occurrence: None)
  Receive Date: 20100826
  Receipt Date: 20100826
  Transmission Date: 20110219
  Serious: No
  Sender: FDA-Public Use
  Company Number: None

PATIENT
  Sex: Female
  Weight: 72.5755 kg

DRUGS (1)
  1. FORTEO [Suspect]
     Indication: OSTEOPOROSIS
     Dosage: 20 MCGS QD SQ
     Route: 058
     Dates: start: 20100601, end: 20100801

REACTIONS (2)
  - JAW DISORDER [None]
  - TOOTH EXTRACTION [None]
